FAERS Safety Report 12784305 (Version 1)
Quarter: 2016Q3

REPORT INFORMATION
  Report Type: Spontaneous
  Country: GB (occurrence: GB)
  Receive Date: 20160927
  Receipt Date: 20160927
  Transmission Date: 20161109
  Serious: Yes (Other)
  Sender: FDA-Public Use
  Company Number: GB-BEH-200609731

PATIENT
  Age: 33 Year
  Sex: Female

DRUGS (1)
  1. STREPTASE [Suspect]
     Active Substance: STREPTOKINASE
     Indication: PLEURAL EFFUSION
     Dosage: DAILY DOSE QUANTITY: 1.5, DAILY DOSE UNIT: MIU
     Route: 034

REACTIONS (2)
  - Haemothorax [Unknown]
  - Instillation site pain [Unknown]
